FAERS Safety Report 21101587 (Version 3)
Quarter: 2022Q3

REPORT INFORMATION
  Report Type: Spontaneous
  Country: US (occurrence: US)
  Receive Date: 20220719
  Receipt Date: 20220922
  Transmission Date: 20221026
  Serious: No
  Sender: FDA-Public Use
  Company Number: US-PFIZER INC-202200966759

PATIENT
  Age: 90 Year
  Sex: Female

DRUGS (14)
  1. PAXLOVID [Suspect]
     Active Substance: NIRMATRELVIR\RITONAVIR
     Indication: COVID-19 treatment
     Dosage: UNK
     Dates: start: 20220714, end: 20220716
  2. ASPIRIN [Concomitant]
     Active Substance: ASPIRIN
     Dosage: UNK
  3. TRIAMTERENE AND HYDROCHLOROTHIAZIDE [Concomitant]
     Active Substance: HYDROCHLOROTHIAZIDE\TRIAMTERENE
     Dosage: UNK
  4. B12 1000 SR [Concomitant]
     Dosage: UNK
  5. NATURE^S BOUNTY IRON [Concomitant]
     Dosage: 65 MG
  6. AMLODIPINE BESYLATE [Concomitant]
     Active Substance: AMLODIPINE BESYLATE
     Dosage: UNK
  7. LISINOPRIL [Concomitant]
     Active Substance: LISINOPRIL
     Dosage: UNK
  8. ATORVASTATIN [Concomitant]
     Active Substance: ATORVASTATIN
     Dosage: UNK
  9. VITAMINS [Concomitant]
     Active Substance: VITAMINS
     Dosage: UNK
  10. NATURE MADE CALCIUM [Concomitant]
     Dosage: UNK
  11. NATURE MADE SUPER B COMPLEX [Concomitant]
     Dosage: UNK
  12. NATURE MADE C [Concomitant]
     Dosage: UNK
  13. OCUVITE [ASCORBIC ACID;RETINOL;TOCOPHEROL] [Concomitant]
     Dosage: UNK
  14. GAS-X [Concomitant]
     Active Substance: DIMETHICONE
     Dosage: UNK

REACTIONS (2)
  - Diarrhoea [Recovered/Resolved]
  - Incorrect product administration duration [Unknown]

NARRATIVE: CASE EVENT DATE: 20220715
